FAERS Safety Report 14033756 (Version 3)
Quarter: 2017Q4

REPORT INFORMATION
  Report Type: Spontaneous
  Country: JP (occurrence: JP)
  Receive Date: 20171003
  Receipt Date: 20171102
  Transmission Date: 20180321
  Serious: Yes (Other)
  Sender: FDA-Public Use
  Company Number: JP-009507513-1709JPN002831J

PATIENT
  Age: 22 Year
  Sex: Male
  Weight: 39 kg

DRUGS (15)
  1. DIAPP [Concomitant]
     Active Substance: DIAZEPAM
     Dosage: 1 DF, UNK
     Route: 054
  2. ALLELOCK [Concomitant]
     Active Substance: OLOPATADINE HYDROCHLORIDE
     Indication: WOUND
  3. GENTAMICIN SULFATE. [Concomitant]
     Active Substance: GENTAMICIN SULFATE
  4. TEGRETOL [Concomitant]
     Active Substance: CARBAMAZEPINE
     Dosage: 1.36 G, UNK
     Route: 048
  5. LOXONIN [Concomitant]
     Active Substance: LOXOPROFEN SODIUM
     Dosage: 60 MG, UNK
     Route: 048
  6. ALLELOCK [Concomitant]
     Active Substance: OLOPATADINE HYDROCHLORIDE
     Indication: DERMATITIS ATOPIC
     Dosage: 5 MG, BID
     Route: 048
     Dates: end: 20170918
  7. HEPARINOID [Concomitant]
     Active Substance: CHONDROITIN SULFATE (BOVINE)
     Dosage: UNK
     Route: 062
  8. RESTAMIN (DIPHENHYDRAMINE HYDROCHLORIDE) [Concomitant]
     Active Substance: DIPHENHYDRAMINE HYDROCHLORIDE
     Dosage: UNK
     Route: 062
  9. DESLORATADINE. [Suspect]
     Active Substance: DESLORATADINE
     Indication: DERMATITIS ATOPIC
     Dosage: 5 MG, QD
     Route: 048
     Dates: start: 20170919, end: 20170925
  10. DESLORATADINE. [Suspect]
     Active Substance: DESLORATADINE
     Indication: WOUND
  11. MAGNESIUM OXIDE. [Concomitant]
     Active Substance: MAGNESIUM OXIDE
     Dosage: 0.5 G, QD
     Route: 048
  12. RINDERON VG [Concomitant]
     Active Substance: BETAMETHASONE VALERATE\GENTAMICIN SULFATE
     Dosage: UNK
     Route: 062
  13. SELENICA R [Concomitant]
     Active Substance: VALPROATE SODIUM
     Dosage: 4.25 G, UNK
  14. E KEPPRA [Concomitant]
     Active Substance: LEVETIRACETAM
     Dosage: 3000 MG, UNK
     Route: 048
  15. ONON DRYSYRUP [Concomitant]
     Dosage: 5 G, UNK
     Route: 048

REACTIONS (2)
  - Epilepsy [Unknown]
  - Epilepsy [Recovering/Resolving]

NARRATIVE: CASE EVENT DATE: 20170920
